FAERS Safety Report 5463492-5 (Version None)
Quarter: 2007Q3

REPORT INFORMATION
  Report Type: 
  Country: None (occurrence: None)
  Receive Date: 20070920
  Receipt Date: 20070908
  Transmission Date: 20080115
  Serious: Yes (Death, Hospitalization)
  Sender: FDA-Public Use
  Company Number: PFIZER INC-2007074666

PATIENT
  Age: 77 Year
  Sex: Male
  Weight: 66.2 kg

DRUGS (1)
  1. SUTENT [Suspect]
     Indication: SQUAMOUS CELL CARCINOMA
     Route: 048
     Dates: start: 20070717, end: 20070806

REACTIONS (2)
  - DEATH [None]
  - DEHYDRATION [None]
